FAERS Safety Report 19487619 (Version 1)
Quarter: 2021Q3

REPORT INFORMATION
  Report Type: Spontaneous
  Country: DE (occurrence: DE)
  Receive Date: 20210702
  Receipt Date: 20210702
  Transmission Date: 20211014
  Serious: Yes (Other)
  Sender: FDA-Public Use
  Company Number: DE-TAKEDA-2021TUS034646AA

PATIENT
  Age: 20 Year
  Sex: Female
  Weight: 55.78 kg

DRUGS (1)
  1. DIAZEPAM. [Suspect]
     Active Substance: DIAZEPAM
     Route: 065

REACTIONS (7)
  - Asthenia [Recovered/Resolved]
  - Amnesia [Recovered/Resolved]
  - Somnolence [Recovered/Resolved]
  - Seizure [Recovered/Resolved]
  - Paradoxical drug reaction [Unknown]
  - Aggression [Recovered/Resolved]
  - Tachycardia [Recovered/Resolved]

NARRATIVE: CASE EVENT DATE: 20210518
